FAERS Safety Report 21265974 (Version 1)
Quarter: 2022Q3

REPORT INFORMATION
  Report Type: Spontaneous
  Country: US (occurrence: US)
  Receive Date: 20220829
  Receipt Date: 20220829
  Transmission Date: 20221027
  Serious: No
  Sender: FDA-Public Use
  Company Number: US-PFIZER INC-202201095122

PATIENT
  Age: 51 Year
  Sex: Female
  Weight: 65.77 kg

DRUGS (3)
  1. PAXLOVID [Suspect]
     Active Substance: NIRMATRELVIR\RITONAVIR
     Indication: COVID-19 treatment
     Dosage: 2 DF, 2X/DAY (TAKE ONE 150MG WHITE TABLET AND ONE 100MG TABLET IN THE MORNING AND EVENING)
     Dates: start: 20220824
  2. AMOXICILLIN [Concomitant]
     Active Substance: AMOXICILLIN
     Indication: Tooth infection
     Dosage: UNK
  3. AMOXICILLIN [Concomitant]
     Active Substance: AMOXICILLIN
     Indication: Oral surgery

REACTIONS (7)
  - Nausea [Unknown]
  - Abdominal discomfort [Unknown]
  - Diarrhoea [Unknown]
  - Malaise [Unknown]
  - Dysgeusia [Unknown]
  - Product prescribing error [Unknown]
  - Incorrect dose administered [Unknown]

NARRATIVE: CASE EVENT DATE: 20220801
